FAERS Safety Report 6689430-5 (Version None)
Quarter: 2010Q2

REPORT INFORMATION
  Report Type: 
  Country: None (occurrence: None)
  Receive Date: 20100421
  Receipt Date: 20100412
  Transmission Date: 20101027
  Serious: Yes (Hospitalization)
  Sender: FDA-Public Use
  Company Number: US-BIOGENIDEC-2010BI007149

PATIENT
  Age: 60 Year
  Sex: Male

DRUGS (10)
  1. TYSABRI [Suspect]
     Indication: MULTIPLE SCLEROSIS
     Route: 042
     Dates: start: 20081215, end: 20100204
  2. SERTRALINE HCL [Concomitant]
     Route: 048
  3. BACLOFEN [Concomitant]
  4. VITAMIN D [Concomitant]
  5. GLUCOSAMINE-CHONDROITIN [Concomitant]
  6. GINKOBA [Concomitant]
  7. FISH OIL [Concomitant]
  8. EVENING PRIMROSE OIL [Concomitant]
  9. TYLENOL PM [Concomitant]
     Indication: SLEEP DISORDER
  10. POTASSIUM AMINOBENZOATE [Concomitant]

REACTIONS (1)
  - SURGERY [None]
